FAERS Safety Report 6189902-6 (Version None)
Quarter: 2009Q2

REPORT INFORMATION
  Report Type: 
  Country: None (occurrence: None)
  Receive Date: 20090514
  Receipt Date: 20090504
  Transmission Date: 20091009
  Serious: Yes (Hospitalization, Other)
  Sender: FDA-Public Use
  Company Number: US-AMGEN-QUU345446

PATIENT
  Sex: Female

DRUGS (7)
  1. ENBREL [Suspect]
     Indication: PSORIATIC ARTHROPATHY
     Route: 058
     Dates: start: 20030201
  2. ENBREL [Suspect]
     Indication: PSORIASIS
  3. NABUMETONE [Concomitant]
  4. PREVACID [Concomitant]
     Route: 048
  5. VITAMIN TAB [Concomitant]
  6. TYLENOL [Concomitant]
     Route: 048
  7. IBUPROFEN [Concomitant]

REACTIONS (5)
  - FACE PRESENTATION [None]
  - LARGE FOR DATES BABY [None]
  - PSORIASIS [None]
  - PSORIATIC ARTHROPATHY [None]
  - STREPTOCOCCAL IDENTIFICATION TEST POSITIVE [None]
